FAERS Safety Report 9288779 (Version 1)
Quarter: 2013Q2

REPORT INFORMATION
  Report Type: Spontaneous
  Country: US (occurrence: US)
  Receive Date: 20130514
  Receipt Date: 20130514
  Transmission Date: 20140414
  Serious: No
  Sender: FDA-Public Use
  Company Number: US-ASTRAZENECA-2013SE29679

PATIENT
  Age: 70 Year
  Sex: Female
  Weight: 62.6 kg

DRUGS (4)
  1. CRESTOR [Suspect]
     Route: 048
  2. OMEPRAZOLE [Suspect]
     Route: 065
  3. TEMAZEPAM [Suspect]
     Indication: SLEEP DISORDER
     Route: 048
     Dates: start: 2011
  4. CELEBREX [Suspect]
     Route: 065

REACTIONS (2)
  - Oedema mouth [Not Recovered/Not Resolved]
  - Swelling face [Not Recovered/Not Resolved]
